FAERS Safety Report 4741163-8 (Version None)
Quarter: 2005Q3

REPORT INFORMATION
  Report Type: 
  Country: None (occurrence: None)
  Receive Date: 20050803
  Receipt Date: 20041208
  Transmission Date: 20060218
  Serious: Yes (Hospitalization)
  Sender: FDA-Public Use
  Company Number: 2004-12-0468

PATIENT
  Age: 52 Year
  Sex: Male
  Weight: 116 kg

DRUGS (5)
  1. INTRON A [Suspect]
     Indication: MALIGNANT MELANOMA
     Dosage: INTERMITTENT INTRAVENOUS
     Route: 042
  2. ZOLOFT [Concomitant]
  3. OXYCODONE [Concomitant]
  4. ATIVAN [Concomitant]
  5. COMPAZINE [Concomitant]

REACTIONS (11)
  - CATHETER RELATED INFECTION [None]
  - DYSPNOEA EXERTIONAL [None]
  - HEADACHE [None]
  - KLEBSIELLA INFECTION [None]
  - NAUSEA [None]
  - NEUTROPENIA [None]
  - PRODUCTIVE COUGH [None]
  - PYREXIA [None]
  - RHINORRHOEA [None]
  - VOMITING [None]
  - WEIGHT DECREASED [None]
